FAERS Safety Report 6174832-6 (Version None)
Quarter: 2009Q2

REPORT INFORMATION
  Report Type: 
  Country: None (occurrence: None)
  Receive Date: 20090430
  Receipt Date: 20081121
  Transmission Date: 20091009
  Serious: No
  Sender: FDA-Public Use
  Company Number: US-ASTRAZENECA-2008UW26188

PATIENT
  Age: 32 Year
  Sex: Female

DRUGS (2)
  1. NEXIUM [Suspect]
     Indication: GASTROOESOPHAGEAL REFLUX DISEASE
     Route: 048
     Dates: start: 20080301, end: 20080401
  2. NEXIUM [Suspect]
     Route: 048
     Dates: start: 20081103

REACTIONS (5)
  - ANXIETY [None]
  - FATIGUE [None]
  - TENSION HEADACHE [None]
  - VERTIGO [None]
  - VISION BLURRED [None]
